FAERS Safety Report 13965426 (Version 2)
Quarter: 2017Q4

REPORT INFORMATION
  Report Type: Report from Study
  Country: US (occurrence: US)
  Receive Date: 20170913
  Receipt Date: 20171127
  Transmission Date: 20180320
  Serious: Yes (Hospitalization)
  Sender: FDA-Public Use
  Company Number: US-BAYER-2017-131122

PATIENT
  Age: 72 Year
  Sex: Female
  Weight: 59.86 kg

DRUGS (8)
  1. ADEMPAS [Suspect]
     Active Substance: RIOCIGUAT
     Indication: PULMONARY ARTERIAL HYPERTENSION
     Dosage: 2.5 MG, TID
     Route: 048
  2. WARFARIN [Concomitant]
     Active Substance: WARFARIN
     Dosage: UNK
  3. ADEMPAS [Suspect]
     Active Substance: RIOCIGUAT
     Indication: PULMONARY ARTERIAL HYPERTENSION
     Dosage: 2.5 MG, TID
     Route: 048
  4. OPSUMIT [Concomitant]
     Active Substance: MACITENTAN
     Dosage: UNK
  5. ADEMPAS [Suspect]
     Active Substance: RIOCIGUAT
     Indication: PULMONARY ARTERIAL HYPERTENSION
     Dosage: 2.5 MG, TID
     Route: 048
  6. ADEMPAS [Suspect]
     Active Substance: RIOCIGUAT
     Indication: PULMONARY ARTERIAL HYPERTENSION
     Dosage: UNK
     Dates: start: 20160718
  7. REMODULIN [Suspect]
     Active Substance: TREPROSTINIL
     Dosage: UNK
  8. OPSUMIT [Concomitant]
     Active Substance: MACITENTAN
     Dosage: UNK

REACTIONS (30)
  - Muscle spasms [None]
  - Diarrhoea [Unknown]
  - International normalised ratio abnormal [None]
  - Mood altered [None]
  - Crying [None]
  - Lung disorder [None]
  - Hypotension [None]
  - Mucous stools [None]
  - Hospitalisation [None]
  - Asthenia [None]
  - Constipation [None]
  - Fatigue [None]
  - Cyanosis [Unknown]
  - Infusion site haemorrhage [None]
  - Malaise [None]
  - Anxiety [None]
  - Fluid retention [Unknown]
  - Peripheral swelling [Not Recovered/Not Resolved]
  - Panic attack [None]
  - Prothrombin level abnormal [None]
  - Anhedonia [None]
  - Pruritus [Unknown]
  - Oxygen saturation decreased [Not Recovered/Not Resolved]
  - Malaise [None]
  - Procedural complication [None]
  - Defaecation urgency [None]
  - Oedema peripheral [None]
  - Nausea [Unknown]
  - Fall [None]
  - Rash pruritic [Unknown]

NARRATIVE: CASE EVENT DATE: 2017
